FAERS Safety Report 7546148-4 (Version None)
Quarter: 2011Q2

REPORT INFORMATION
  Report Type: 
  Country: None (occurrence: None)
  Receive Date: 20110614
  Receipt Date: 20031023
  Transmission Date: 20111010
  Serious: Yes (Hospitalization)
  Sender: FDA-Public Use
  Company Number: PHNR2003AU00574

PATIENT
  Sex: Female

DRUGS (3)
  1. CLOZAPINE [Suspect]
     Dosage: 400 MG/DAY
     Dates: start: 20011213
  2. PYRIDOXINE HCL [Suspect]
  3. SIMVASTATIN [Concomitant]
     Dosage: 20 MG NOCTE

REACTIONS (2)
  - OVERDOSE [None]
  - URINARY TRACT INFECTION [None]
